FAERS Safety Report 20354001 (Version 2)
Quarter: 2022Q1

REPORT INFORMATION
  Report Type: Report from Study
  Country: GB (occurrence: DE)
  Receive Date: 20220120
  Receipt Date: 20220130
  Transmission Date: 20220423
  Serious: Yes (Other)
  Sender: FDA-Public Use
  Company Number: GB-BRISTOL-MYERS SQUIBB COMPANY-BMS-2022-007064

PATIENT
  Age: 78 Year
  Sex: Male

DRUGS (6)
  1. NIVOLUMAB [Suspect]
     Active Substance: NIVOLUMAB
     Indication: B-cell lymphoma
     Dosage: 480 MILLIGRAM, QCYCLE
     Route: 042
     Dates: start: 20210510, end: 20211220
  2. GEMCITABINE HYDROCHLORIDE [Suspect]
     Active Substance: GEMCITABINE HYDROCHLORIDE
     Indication: B-cell lymphoma
     Dosage: 1840 MILLIGRAM, QCYCLE
     Route: 042
     Dates: start: 20210512, end: 20210816
  3. OXALIPLATIN [Suspect]
     Active Substance: OXALIPLATIN
     Indication: B-cell lymphoma
     Dosage: 184 MILLIGRAM, QCYCLE
     Route: 042
     Dates: start: 20210512, end: 20210816
  4. LENOGRASTIM [Suspect]
     Active Substance: LENOGRASTIM
     Indication: B-cell lymphoma
     Dosage: D5, EACH CYCLE
     Route: 058
     Dates: start: 20210821, end: 20210821
  5. VALACYCLOVIR HYDROCHLORIDE [Concomitant]
     Active Substance: VALACYCLOVIR HYDROCHLORIDE
     Indication: Infection prophylaxis
     Dosage: 500 MILLIGRAM, BID
     Route: 048
  6. ELIQUIS [Concomitant]
     Active Substance: APIXABAN
     Indication: Anticoagulant therapy
     Dosage: 2.5 MILLIGRAM, BID
     Route: 048
     Dates: start: 20210511

REACTIONS (1)
  - COVID-19 [Recovered/Resolved]

NARRATIVE: CASE EVENT DATE: 20220114
